FAERS Safety Report 17808096 (Version 1)
Quarter: 2020Q2

REPORT INFORMATION
  Report Type: Spontaneous
  Country: FR (occurrence: FR)
  Receive Date: 20200520
  Receipt Date: 20200520
  Transmission Date: 20200714
  Serious: Yes (Hospitalization, Other)
  Sender: FDA-Public Use
  Company Number: FR-ALEXION PHARMACEUTICALS INC.-A202006816

PATIENT
  Age: 64 Year
  Sex: Male
  Weight: 67 kg

DRUGS (5)
  1. SOLIRIS [Suspect]
     Active Substance: ECULIZUMAB
     Indication: OFF LABEL USE
  2. CALCIPARINE [Suspect]
     Active Substance: HEPARIN CALCIUM
     Indication: ANTIPHOSPHOLIPID SYNDROME
     Dosage: UNK
     Route: 058
     Dates: start: 20200311
  3. EUPANTOL [Suspect]
     Active Substance: PANTOPRAZOLE SODIUM
     Indication: PROPHYLAXIS
     Dosage: 40 MG, QD
     Route: 042
     Dates: start: 20200307, end: 20200323
  4. KEPPRA [Suspect]
     Active Substance: LEVETIRACETAM
     Indication: EPILEPSY
     Dosage: 1000 MG, QD
     Route: 048
     Dates: start: 20200310, end: 20200416
  5. SOLIRIS [Suspect]
     Active Substance: ECULIZUMAB
     Indication: ANTIPHOSPHOLIPID SYNDROME
     Dosage: 900 MG, 1 CYCLICAL}
     Route: 042
     Dates: start: 20200321

REACTIONS (2)
  - Thrombocytopenia [Recovered/Resolved]
  - Off label use [Unknown]

NARRATIVE: CASE EVENT DATE: 20200324
